FAERS Safety Report 5781705-7 (Version None)
Quarter: 2008Q2

REPORT INFORMATION
  Report Type: 
  Country: None (occurrence: None)
  Receive Date: 20080623
  Receipt Date: 20070719
  Transmission Date: 20081010
  Serious: No
  Sender: FDA-Public Use
  Company Number: US-ASTRAZENECA-2007UW17183

PATIENT
  Age: 66 Year
  Sex: Female
  Weight: 72.6 kg

DRUGS (3)
  1. RHINOCORT [Suspect]
     Indication: SINUS DISORDER
     Route: 045
  2. ALBUTEROL [Concomitant]
  3. SYNTHROID [Concomitant]

REACTIONS (3)
  - CHILLS [None]
  - NERVOUSNESS [None]
  - PSYCHOMOTOR HYPERACTIVITY [None]
